FAERS Safety Report 21371052 (Version 1)
Quarter: 2022Q3

REPORT INFORMATION
  Report Type: Spontaneous
  Country: US (occurrence: US)
  Receive Date: 20220923
  Receipt Date: 20220923
  Transmission Date: 20221026
  Serious: Yes (Hospitalization, Other)
  Sender: FDA-Public Use
  Company Number: US-ORGANON-1311USA001667

PATIENT
  Sex: Female

DRUGS (5)
  1. FOSAMAX [Suspect]
     Active Substance: ALENDRONATE SODIUM
     Indication: Osteoporosis
     Dosage: 10 MG, UNK
     Route: 048
     Dates: start: 199801, end: 200201
  2. FOSAMAX [Suspect]
     Active Substance: ALENDRONATE SODIUM
     Dosage: 70 MG, QW
     Route: 048
     Dates: start: 200201, end: 2010
  3. FOSAMAX [Suspect]
     Active Substance: ALENDRONATE SODIUM
     Dosage: 5 MG, QD
     Route: 048
     Dates: start: 20010501, end: 20020712
  4. VYTORIN [Suspect]
     Active Substance: EZETIMIBE\SIMVASTATIN
     Indication: Hypercholesterolaemia
     Dosage: 10 MG/20 MG, QD
     Route: 048
  5. BONIVA [Suspect]
     Active Substance: IBANDRONATE SODIUM
     Dosage: UNK

REACTIONS (28)
  - Femur fracture [Unknown]
  - Humerus fracture [Recovering/Resolving]
  - Foot fracture [Recovered/Resolved]
  - Humerus fracture [Recovered/Resolved]
  - Femur fracture [Unknown]
  - Upper limb fracture [Recovered/Resolved]
  - Wrist fracture [Unknown]
  - Fall [Unknown]
  - Hypercholesterolaemia [Unknown]
  - Hypertension [Unknown]
  - Fibula fracture [Unknown]
  - Radius fracture [Unknown]
  - Back pain [Unknown]
  - Fungal skin infection [Unknown]
  - Chest pain [Unknown]
  - Upper limb fracture [Recovered/Resolved]
  - Eyelid operation [Unknown]
  - Nasal operation [Unknown]
  - Herpes zoster [Unknown]
  - Upper respiratory tract infection [Unknown]
  - Sinusitis [Unknown]
  - Bronchitis [Unknown]
  - Seborrhoeic keratosis [Unknown]
  - Dysuria [Unknown]
  - Pollakiuria [Unknown]
  - Spondylolisthesis [Unknown]
  - Bone pain [Unknown]
  - Arthralgia [Unknown]

NARRATIVE: CASE EVENT DATE: 20010402
